FAERS Safety Report 11751900 (Version 2)
Quarter: 2015Q4

REPORT INFORMATION
  Report Type: Spontaneous
  Country: US (occurrence: US)
  Receive Date: 20151118
  Receipt Date: 20151218
  Transmission Date: 20160304
  Serious: Yes (Other)
  Sender: FDA-Public Use
  Company Number: US-BAYER-2015-461949

PATIENT
  Sex: Male

DRUGS (1)
  1. XOFIGO [Suspect]
     Active Substance: RADIUM RA-223 DICHLORIDE
     Dosage: WAS TO HAVE 102 MICROCURIES (RECEIVED 17 MICROCURIES)
     Dates: start: 20151105

REACTIONS (1)
  - Infusion site extravasation [None]

NARRATIVE: CASE EVENT DATE: 20151105
